FAERS Safety Report 6347862-9 (Version None)
Quarter: 2009Q3

REPORT INFORMATION
  Report Type: 
  Country: None (occurrence: None)
  Receive Date: 20090910
  Receipt Date: 20090831
  Transmission Date: 20100115
  Serious: Yes (Other)
  Sender: FDA-Public Use
  Company Number: US-AVENTIS-200916977US

PATIENT
  Sex: Female
  Weight: 122.92 kg

DRUGS (14)
  1. LANTUS [Suspect]
     Route: 058
     Dates: start: 20070101
  2. LANTUS [Suspect]
     Route: 058
  3. LASIX [Concomitant]
  4. DIGOXIN [Concomitant]
  5. DILTIAZEM [Concomitant]
     Indication: HYPERTENSION
  6. DIOVAN HCT [Concomitant]
     Indication: HYPERTENSION
     Dosage: DOSE: 160/12.5
  7. LIPITOR [Concomitant]
  8. METFORMIN HCL [Concomitant]
  9. HUMALOG [Concomitant]
  10. ASPIRIN [Concomitant]
  11. COUMADIN [Concomitant]
  12. OSCAL                              /00108001/ [Concomitant]
     Dosage: DOSE: UNK
  13. BYETTA [Concomitant]
     Dosage: DOSE: UNK
     Dates: start: 20090701
  14. DRUG USED IN DIABETES [Concomitant]
     Dosage: DOSE: UNK
     Dates: start: 20090701

REACTIONS (3)
  - BREAST CANCER [None]
  - BREAST MASS [None]
  - BREAST PAIN [None]
